FAERS Safety Report 24673133 (Version 5)
Quarter: 2025Q3

REPORT INFORMATION
  Report Type: Spontaneous
  Country: US (occurrence: US)
  Receive Date: 20241128
  Receipt Date: 20250908
  Transmission Date: 20251020
  Serious: No
  Sender: LEO PHARM
  Company Number: US-LEO Pharma-375462

PATIENT
  Age: 27 Year
  Sex: Female

DRUGS (1)
  1. ADBRY [Suspect]
     Active Substance: TRALOKINUMAB-LDRM
     Indication: Dermatitis atopic
     Dosage: STARTED 09/2024
     Dates: start: 202409

REACTIONS (6)
  - Eye irritation [Unknown]
  - Vision blurred [Unknown]
  - Eye pruritus [Unknown]
  - Dry eye [Unknown]
  - Dermatitis atopic [Unknown]
  - Conjunctivitis [Unknown]
